FAERS Safety Report 26040324 (Version 2)
Quarter: 2025Q4

REPORT INFORMATION
  Report Type: Spontaneous
  Country: TW (occurrence: TW)
  Receive Date: 20251113
  Receipt Date: 20251126
  Transmission Date: 20260117
  Serious: Yes (Death)
  Sender: ALEXION PHARMACEUTICALS
  Company Number: TW-ASTRAZENECA-202511ASI005708TW

PATIENT
  Age: 84 Year
  Sex: Female
  Weight: 45.5 kg

DRUGS (15)
  1. TAGRISSO [Suspect]
     Active Substance: OSIMERTINIB
     Indication: Non-small cell lung cancer
     Dosage: 80 MILLIGRAM, QD
     Dates: start: 20200414, end: 20251027
  2. PERTUZUMAB [Suspect]
     Active Substance: PERTUZUMAB
     Indication: Breast cancer
     Dosage: 420 MILLIGRAM, Q3W
     Dates: start: 20250611, end: 20251015
  3. HERCEPTIN [Suspect]
     Active Substance: TRASTUZUMAB
     Indication: Breast cancer
     Dosage: 264 MILLIGRAM, Q3W
     Dates: start: 20250611, end: 20251015
  4. DOCETAXEL [Suspect]
     Active Substance: DOCETAXEL
     Indication: Breast cancer
     Dosage: 58 MILLIGRAM, Q3W
     Dates: start: 20250611, end: 20251015
  5. Newzyme [Concomitant]
     Dosage: UNK, TID
     Dates: start: 20251020
  6. FAMOTIDINE [Concomitant]
     Active Substance: FAMOTIDINE
     Dosage: UNK UNK, BID
     Dates: start: 20251020
  7. SMECTA [Concomitant]
     Active Substance: MONTMORILLONITE
     Dosage: UNK UNK, TID
     Dates: start: 20251013
  8. Imolex [Concomitant]
     Dosage: 4 MILLIGRAM, BID
     Dates: start: 20251013
  9. Megest [Concomitant]
     Dosage: 400 MILLIGRAM, QD
     Dates: start: 20251013, end: 20251027
  10. Ichderm [Concomitant]
     Dosage: UNK UNK, QID
     Dates: start: 20251013, end: 20251102
  11. SULFAMETHOXAZOLE [Concomitant]
     Active Substance: SULFAMETHOXAZOLE
     Dosage: UNK, BID
     Dates: start: 20251030, end: 20251102
  12. PIPERACILLIN SODIUM\TAZOBACTAM SODIUM [Concomitant]
     Active Substance: PIPERACILLIN SODIUM\TAZOBACTAM SODIUM
     Dosage: UNK, Q8H
     Dates: start: 20251030, end: 20251031
  13. MEROPENEM [Concomitant]
     Active Substance: MEROPENEM
     Dosage: UNK, Q12H
     Dates: start: 20251031, end: 20251102
  14. Leflodal [Concomitant]
     Dosage: 750 MILLIGRAM, QOD
     Dates: start: 20251031, end: 20251102
  15. TARGOCID [Concomitant]
     Active Substance: TEICOPLANIN
     Dosage: 400 MILLIGRAM, Q12H
     Dates: start: 20251031, end: 20251031

REACTIONS (5)
  - Dyspnoea [Fatal]
  - Cough [Fatal]
  - Pyrexia [Fatal]
  - Lung opacity [Fatal]
  - Interstitial lung disease [Fatal]

NARRATIVE: CASE EVENT DATE: 20251028
